FAERS Safety Report 6277829-0 (Version None)
Quarter: 2009Q3

REPORT INFORMATION
  Report Type: 
  Country: None (occurrence: None)
  Receive Date: 20090717
  Receipt Date: 20090717
  Transmission Date: 20100115
  Serious: No
  Sender: FDA-Public Use
  Company Number: None

PATIENT
  Age: 58 Year
  Sex: Female
  Weight: 147.419 kg

DRUGS (1)
  1. VYTORIN [Suspect]
     Indication: BLOOD CHOLESTEROL
     Dosage: 1 DAY PO
     Route: 048
     Dates: start: 20081001, end: 20090713

REACTIONS (5)
  - ASTHENIA [None]
  - BURNING SENSATION [None]
  - HYPERAESTHESIA [None]
  - MUSCLE SPASMS [None]
  - MYALGIA [None]
